FAERS Safety Report 4387531-8 (Version None)
Quarter: 2004Q2

REPORT INFORMATION
  Report Type: 
  Country: None (occurrence: None)
  Receive Date: 20040630
  Receipt Date: 20040505
  Transmission Date: 20050107
  Serious: No
  Sender: FDA-Public Use
  Company Number: US-GLAXOSMITHKLINE-A0509628A

PATIENT
  Age: 74 Year
  Sex: Female

DRUGS (4)
  1. ADVAIR HFA [Suspect]
     Indication: INFLUENZA
     Dosage: 1PUFF TWICE PER DAY
     Route: 055
  2. Z-PAK [Concomitant]
  3. NORVASC [Concomitant]
  4. ALEVE [Concomitant]

REACTIONS (1)
  - DRUG INEFFECTIVE [None]
